FAERS Safety Report 11646482 (Version 2)
Quarter: 2016Q2

REPORT INFORMATION
  Report Type: Spontaneous
  Country: US (occurrence: US)
  Receive Date: 20151020
  Receipt Date: 20160429
  Transmission Date: 20160815
  Serious: No
  Sender: FDA-Public Use
  Company Number: US-ROCHE-1607096

PATIENT
  Sex: Male
  Weight: 122.58 kg

DRUGS (2)
  1. ESBRIET [Suspect]
     Active Substance: PIRFENIDONE
     Indication: IDIOPATHIC PULMONARY FIBROSIS
     Dosage: 3 CAPULES THRICE DAILY
     Route: 048
     Dates: start: 20150211
  2. ESBRIET [Suspect]
     Active Substance: PIRFENIDONE
     Dosage: 2 CAPSULES THRICE DAILY
     Route: 048

REACTIONS (7)
  - Decreased appetite [Unknown]
  - Nausea [Unknown]
  - Nasopharyngitis [Unknown]
  - Abdominal discomfort [Recovering/Resolving]
  - Dizziness [Unknown]
  - Tremor [Recovering/Resolving]
  - Malaise [Unknown]
